FAERS Safety Report 13714266 (Version 3)
Quarter: 2017Q3

REPORT INFORMATION
  Report Type: Report from Study
  Country: None (occurrence: BE)
  Receive Date: 20170704
  Receipt Date: 20170901
  Transmission Date: 20171127
  Serious: Yes (Hospitalization)
  Sender: FDA-Public Use
  Company Number: BE-ABBVIE-17K-013-2027846-00

PATIENT
  Sex: Male

DRUGS (8)
  1. DUODOPA [Suspect]
     Active Substance: CARBIDOPA\LEVODOPA
     Indication: PARKINSON^S DISEASE
     Route: 050
     Dates: start: 20100208, end: 20110511
  2. DUODOPA [Suspect]
     Active Substance: CARBIDOPA\LEVODOPA
     Dosage: DOSES CONTINUOUSLY MONITORED AND ADAPTED
     Route: 050
     Dates: start: 20110824, end: 20160920
  3. DUODOPA [Suspect]
     Active Substance: CARBIDOPA\LEVODOPA
     Dosage: MD: 3 ML??CD: 2.5 ML/HR DURING 16 HRS??EDA: 2 ML
     Route: 050
     Dates: start: 20170629, end: 20170630
  4. DUODOPA [Suspect]
     Active Substance: CARBIDOPA\LEVODOPA
     Dosage: MD= 1 ML; CD= 2.8 ML/H DURING 16 HRS; EDA= 2 ML
     Route: 050
     Dates: start: 20170811
  5. DUODOPA [Suspect]
     Active Substance: CARBIDOPA\LEVODOPA
     Dosage: UNKNOWN, CHANGED BY PATIENT
     Route: 050
     Dates: end: 20170629
  6. DUODOPA [Suspect]
     Active Substance: CARBIDOPA\LEVODOPA
     Dosage: MD: 4 ML??CD: 2.5 ML/HR DURING 16 HRS??EDA: 2 ML
     Route: 050
     Dates: start: 20170630, end: 20170811
  7. DUODOPA [Suspect]
     Active Substance: CARBIDOPA\LEVODOPA
     Dosage: MD: 4 ML??CD: 3.8 ML/HR DURING 16 HRS??EDA: 2.5 ML
     Route: 050
     Dates: start: 20110511, end: 20110824
  8. DUODOPA [Suspect]
     Active Substance: CARBIDOPA\LEVODOPA
     Dosage: MD: 3 ML??CD: 2.5 ML/HR DURING 16 HRS??EDA: 2 ML
     Route: 050
     Dates: start: 20160920

REACTIONS (5)
  - Cognitive disorder [Unknown]
  - Lumbar vertebral fracture [Unknown]
  - Fall [Recovered/Resolved]
  - Drug effect incomplete [Unknown]
  - Wrong technique in device usage process [Unknown]
